FAERS Safety Report 11269030 (Version 1)
Quarter: 2015Q3

REPORT INFORMATION
  Report Type: Spontaneous
  Country: US (occurrence: US)
  Receive Date: 20150714
  Receipt Date: 20150714
  Transmission Date: 20151125
  Serious: No
  Sender: FDA-Public Use
  Company Number: PHEH2014US017927

PATIENT
  Sex: Female

DRUGS (5)
  1. BABY ASPIRIN [Concomitant]
     Active Substance: ASPIRIN
     Dosage: UNK UKN, UNK
  2. PRENATAL VITAMINS [Concomitant]
     Active Substance: VITAMINS
     Dosage: UNK UKN, UNK
  3. VITAMIN D3 [Concomitant]
     Active Substance: CHOLECALCIFEROL
     Dosage: UNK UKN, UNK
  4. DIOVAN [Suspect]
     Active Substance: VALSARTAN
     Dosage: UNK UKN, UNK
  5. VALSARTAN. [Suspect]
     Active Substance: VALSARTAN
     Dosage: 160 MG, UNK

REACTIONS (1)
  - Drug ineffective [Unknown]
